FAERS Safety Report 7407058-6 (Version None)
Quarter: 2011Q2

REPORT INFORMATION
  Report Type: 
  Country: None (occurrence: None)
  Receive Date: 20110411
  Receipt Date: 20110328
  Transmission Date: 20111010
  Serious: Yes (Death, Hospitalization)
  Sender: FDA-Public Use
  Company Number: FR-ROCHE-757931

PATIENT
  Sex: Male
  Weight: 75 kg

DRUGS (4)
  1. CORTANCYL [Concomitant]
     Indication: RHEUMATOID ARTHRITIS
     Dosage: FREQUENCY: DAILY
     Route: 048
  2. ROACTEMRA [Suspect]
     Indication: RHEUMATOID ARTHRITIS
     Dosage: FREQUENCY : PER CYCLE, FORM: INFUSION, DOSE: 8 MG/KG
     Route: 042
     Dates: start: 20101013
  3. ROACTEMRA [Suspect]
     Dosage: LAST INFUSION
     Route: 042
     Dates: start: 20101110
  4. NEXIUM [Concomitant]
     Dosage: FREQUENCY: DAILY
     Route: 048

REACTIONS (4)
  - PNEUMONIA [None]
  - DYSPNOEA EXERTIONAL [None]
  - SUDDEN DEATH [None]
  - EPSTEIN-BARR VIRUS INFECTION [None]
